FAERS Safety Report 21157894 (Version 1)
Quarter: 2022Q3

REPORT INFORMATION
  Report Type: Spontaneous
  Country: TR (occurrence: TR)
  Receive Date: 20220801
  Receipt Date: 20220801
  Transmission Date: 20221027
  Serious: Yes (Other)
  Sender: FDA-Public Use
  Company Number: TR-ALLERGAN-2224688US

PATIENT
  Sex: Female
  Weight: 68 kg

DRUGS (1)
  1. ALPHAGAN P [Suspect]
     Active Substance: BRIMONIDINE TARTRATE
     Indication: Ocular hypertension
     Dosage: 1 DF, QD
     Route: 047
     Dates: start: 20220707, end: 20220711

REACTIONS (1)
  - Anterior chamber disorder [Not Recovered/Not Resolved]

NARRATIVE: CASE EVENT DATE: 20220707
